FAERS Safety Report 21211251 (Version 1)
Quarter: 2022Q3

REPORT INFORMATION
  Report Type: Spontaneous
  Country: US (occurrence: None)
  Receive Date: 20220812
  Receipt Date: 20220812
  Transmission Date: 20221026
  Serious: Yes (Other)
  Sender: FDA-Public Use
  Company Number: None

PATIENT
  Age: 61 Year
  Sex: Female
  Weight: 105.75 kg

DRUGS (1)
  1. PAXLOVID [Suspect]
     Active Substance: NIRMATRELVIR\RITONAVIR
     Indication: COVID-19
     Dosage: FREQUENCY : TWICE A DAY;?
     Route: 048
     Dates: start: 20220804, end: 20220805

REACTIONS (6)
  - Mouth swelling [None]
  - Swollen tongue [None]
  - Pharyngeal swelling [None]
  - Throat irritation [None]
  - Eye pruritus [None]
  - Pruritus [None]

NARRATIVE: CASE EVENT DATE: 20220805
